FAERS Safety Report 8099729-6 (Version None)
Quarter: 2012Q1

REPORT INFORMATION
  Report Type: 
  Country: None (occurrence: None)
  Receive Date: 20120129
  Receipt Date: 20110914
  Transmission Date: 20120608
  Serious: Yes (Other)
  Sender: FDA-Public Use
  Company Number: US-ABBOTT-11P-163-0855486-00

PATIENT
  Sex: Female
  Weight: 66.284 kg

DRUGS (2)
  1. HUMIRA [Suspect]
     Indication: RHEUMATOID ARTHRITIS
     Dates: start: 20090401, end: 20110401
  2. HUMIRA [Suspect]
     Dates: start: 20110727

REACTIONS (1)
  - SPINAL FUSION SURGERY [None]
